FAERS Safety Report 7127375-7 (Version None)
Quarter: 2010Q4

REPORT INFORMATION
  Report Type: 
  Country: None (occurrence: None)
  Receive Date: 20101129
  Receipt Date: 20100520
  Transmission Date: 20110411
  Serious: No
  Sender: FDA-Public Use
  Company Number: US-PFIZER INC-2010064400

PATIENT
  Sex: Male
  Weight: 95.238 kg

DRUGS (1)
  1. VIAGRA [Suspect]
     Indication: ERECTILE DYSFUNCTION
     Dosage: 100 MG, AS NEEDED
     Route: 048

REACTIONS (4)
  - CHROMATOPSIA [None]
  - DRUG INEFFECTIVE [None]
  - HEADACHE [None]
  - NASAL CONGESTION [None]
